FAERS Safety Report 8984699 (Version 1)
Quarter: 2012Q4

REPORT INFORMATION
  Report Type: 
  Country: US (occurrence: US)
  Receive Date: 20121225
  Receipt Date: 20121225
  Transmission Date: 20130627
  Serious: No
  Sender: FDA-Public Use
  Company Number: US-JNJFOC-20121210315

PATIENT
  Age: 46 None
  Sex: Female

DRUGS (11)
  1. FENTANYL TRANSDEMAL SYSTEM [Suspect]
     Indication: BACK DISORDER
     Route: 062
     Dates: start: 20121204
  2. LYRICA [Concomitant]
     Indication: FIBROMYALGIA
     Route: 048
  3. METHOCARBAMOL [Concomitant]
     Indication: MUSCLE RELAXANT THERAPY
     Route: 048
     Dates: start: 201210
  4. VALACYCLOVIR [Concomitant]
     Indication: HERPES ZOSTER
     Route: 048
     Dates: start: 2008
  5. NEXIUM [Concomitant]
     Indication: GASTROOESOPHAGEAL REFLUX DISEASE
     Route: 048
     Dates: start: 2004
  6. RANITIDINE [Concomitant]
     Indication: ULCER
     Dosage: at night
     Route: 048
  7. OXYCODONE HCL [Concomitant]
     Indication: BREAKTHROUGH PAIN
     Dosage: twice daily as needed
     Route: 048
     Dates: start: 201209
  8. SPIRIVA [Concomitant]
     Indication: CHRONIC OBSTRUCTIVE PULMONARY DISEASE
     Dosage: Dosage form is mist
     Route: 055
  9. COMBIVENT [Concomitant]
     Indication: ASTHMA
     Dosage: 8.3 g/100/mist/8.3 g/100/as needed
     Route: 055
  10. SYMBICORT [Concomitant]
     Indication: PRODUCT USED FOR UNKNOWN INDICATION
     Dosage: 60 mg/4.5 mg/aerosol 4.5 mg/2 puffs once daily
     Route: 055
  11. FLUTICASONE PROPIONATE [Concomitant]
     Indication: PRODUCT USED FOR UNKNOWN INDICATION
     Dosage: 1 spray in eacn nostril twice daily
     Route: 045

REACTIONS (8)
  - Application site reaction [Unknown]
  - Laryngitis [Not Recovered/Not Resolved]
  - Wrong technique in drug usage process [Not Recovered/Not Resolved]
  - Drug ineffective [Not Recovered/Not Resolved]
  - Breakthrough pain [Not Recovered/Not Resolved]
  - Malaise [Recovered/Resolved]
  - Diarrhoea [Recovered/Resolved]
  - Malaise [None]
